FAERS Safety Report 7362216-4 (Version None)
Quarter: 2011Q1

REPORT INFORMATION
  Report Type: 
  Country: None (occurrence: None)
  Receive Date: 20110318
  Receipt Date: 20110304
  Transmission Date: 20110831
  Serious: Yes (Other)
  Sender: FDA-Public Use
  Company Number: PHEH2006US10883

PATIENT
  Sex: Male

DRUGS (26)
  1. NORVASC [Concomitant]
     Dosage: 10 MG, UNK
  2. ZOMETA [Suspect]
  3. ACETAMINOPHEN AND TRAMADOL HCL [Concomitant]
  4. LORTAB [Concomitant]
     Dosage: 5/500
  5. AMOXICILLIN AND CLAVULANATE POTASSIUM [Concomitant]
  6. CIPROFLOXACIN [Concomitant]
  7. MS CONTIN [Concomitant]
  8. ANUSOL PLUS [Concomitant]
     Indication: HAEMORRHOIDS
  9. AMBIEN [Concomitant]
  10. HYDROCODONE BITARTRATE AND ACETAMINOPHEN [Concomitant]
  11. DURAGESIC-50 [Concomitant]
  12. AMLODIPINE [Concomitant]
  13. SENNA [Concomitant]
  14. HYDROCHLOROTHIAZIDE [Concomitant]
  15. POTASSIUM CHLORIDE [Concomitant]
  16. ZOLPIDEM [Concomitant]
  17. THALIDOMIDE [Concomitant]
  18. CEPHALEXIN [Concomitant]
     Dosage: 500 MG, UNK
  19. BUTALBITAL ACETAMINOPHEN AND CAFFEINE [Concomitant]
  20. AMPICILLIN [Concomitant]
  21. TEMSIROLIMUS [Concomitant]
  22. METHADON HCL TAB [Concomitant]
  23. LEVAQUIN [Concomitant]
  24. DOCUSATE [Concomitant]
  25. MARINOL [Concomitant]
  26. ANUSOL                                  /NET/ [Concomitant]

REACTIONS (28)
  - PURULENT DISCHARGE [None]
  - PLEURAL EFFUSION [None]
  - LYMPHADENOPATHY [None]
  - METASTASES TO LUNG [None]
  - PATHOLOGICAL FRACTURE [None]
  - ANAEMIA [None]
  - RESPIRATORY FAILURE [None]
  - DECREASED ACTIVITY [None]
  - FLUID RETENTION [None]
  - INJURY [None]
  - PAIN [None]
  - ORAL NEOPLASM [None]
  - LYMPHADENOPATHY MEDIASTINAL [None]
  - PNEUMONIA [None]
  - HAEMOPTYSIS [None]
  - METASTASES TO BONE [None]
  - OSTEONECROSIS OF JAW [None]
  - ANXIETY [None]
  - OSTEITIS [None]
  - DYSPNOEA [None]
  - CONSTIPATION [None]
  - SWELLING [None]
  - PYREXIA [None]
  - FATIGUE [None]
  - EXOSTOSIS [None]
  - ATELECTASIS [None]
  - METASTASES TO CENTRAL NERVOUS SYSTEM [None]
  - ORAL INFECTION [None]
